FAERS Safety Report 20823861 (Version 2)
Quarter: 2022Q2

REPORT INFORMATION
  Report Type: Report from Study
  Country: AR (occurrence: AR)
  Receive Date: 20220513
  Receipt Date: 20220620
  Transmission Date: 20220721
  Serious: Yes (Life-Threatening, Hospitalization, Other)
  Sender: FDA-Public Use
  Company Number: AR-NOVARTISPH-NVSC2022AR108325

PATIENT
  Age: 76 Year
  Sex: Male

DRUGS (4)
  1. GLYCOPYRRONIUM\INDACATEROL [Suspect]
     Active Substance: GLYCOPYRRONIUM\INDACATEROL
     Indication: Chronic obstructive pulmonary disease
     Dosage: UNK
     Route: 065
     Dates: start: 2016, end: 2021
  2. GLYCOPYRRONIUM\INDACATEROL [Suspect]
     Active Substance: GLYCOPYRRONIUM\INDACATEROL
     Indication: Neoplasm
     Dosage: UNK
     Route: 065
     Dates: start: 202204
  3. DELTISONE [Concomitant]
     Indication: Product used for unknown indication
     Dosage: UNK, (20 MG OR 10 MG)
     Route: 065
  4. BUDESONIDE\FORMOTEROL [Concomitant]
     Active Substance: BUDESONIDE\FORMOTEROL
     Indication: Product used for unknown indication
     Dosage: 400 MG
     Route: 065

REACTIONS (7)
  - Pulmonary function test decreased [Unknown]
  - Urinary incontinence [Unknown]
  - Diabetes mellitus [Unknown]
  - Renal disorder [Unknown]
  - Respiratory disorder [Unknown]
  - Pyrexia [Unknown]
  - Product use in unapproved indication [Unknown]

NARRATIVE: CASE EVENT DATE: 20220101
